FAERS Safety Report 8211028-8 (Version None)
Quarter: 2012Q1

REPORT INFORMATION
  Report Type: 
  Country: None (occurrence: None)
  Receive Date: 20120315
  Receipt Date: 20120305
  Transmission Date: 20120608
  Serious: Yes (Other)
  Sender: FDA-Public Use
  Company Number: PHHY2012BR019768

PATIENT
  Sex: Male

DRUGS (1)
  1. HYDERGINE [Suspect]
     Dosage: 1 DF, DAILY

REACTIONS (1)
  - GASTROINTESTINAL CARCINOMA [None]
